FAERS Safety Report 7761708-3 (Version None)
Quarter: 2011Q3

REPORT INFORMATION
  Report Type: 
  Country: None (occurrence: None)
  Receive Date: 20110919
  Receipt Date: 20110919
  Transmission Date: 20111222
  Serious: Yes (Hospitalization)
  Sender: FDA-Public Use
  Company Number: None

PATIENT
  Sex: Female
  Weight: 43.6 kg

DRUGS (1)
  1. PACLITAXEL [Suspect]
     Dosage: 1.9 MG
     Dates: end: 20110804

REACTIONS (10)
  - CHEST DISCOMFORT [None]
  - THROAT IRRITATION [None]
  - FLUSHING [None]
  - NAUSEA [None]
  - INFUSION RELATED REACTION [None]
  - BLOOD CULTURE POSITIVE [None]
  - BLOOD PRESSURE DECREASED [None]
  - VOMITING [None]
  - CONSTIPATION [None]
  - DIZZINESS [None]
